FAERS Safety Report 5814478-X (Version None)
Quarter: 2008Q3

REPORT INFORMATION
  Report Type: 
  Country: None (occurrence: None)
  Receive Date: 20080718
  Receipt Date: 20080708
  Transmission Date: 20090109
  Serious: Yes (Other)
  Sender: FDA-Public Use
  Company Number: DE-JNJFOC-20080607048

PATIENT
  Age: 21 Year
  Sex: Female

DRUGS (6)
  1. REMICADE [Suspect]
     Dosage: 6TH INFUSION
     Route: 042
  2. REMICADE [Suspect]
     Dosage: 4 INFUSIONS OF UNSPECIFIED DOSAGE ON UNSPECIFIED DAES
     Route: 042
  3. REMICADE [Suspect]
     Indication: CROHN'S DISEASE
     Route: 042
  4. MEZAVANT [Concomitant]
  5. BUDESONIDE [Concomitant]
  6. IDEOS [Concomitant]

REACTIONS (5)
  - BRONCHOSPASM [None]
  - DEFAECATION URGENCY [None]
  - DYSPNOEA [None]
  - INFUSION RELATED REACTION [None]
  - PALPITATIONS [None]
